FAERS Safety Report 21608783 (Version 3)
Quarter: 2022Q4

REPORT INFORMATION
  Report Type: Spontaneous
  Country: US (occurrence: US)
  Receive Date: 20221117
  Receipt Date: 20221122
  Transmission Date: 20230113
  Serious: Yes (Other)
  Sender: FDA-Public Use
  Company Number: US-PFIZER INC-PV202200105048

PATIENT
  Age: 71 Year
  Sex: Female
  Weight: 86.18 kg

DRUGS (2)
  1. PROPOFOL [Suspect]
     Active Substance: PROPOFOL
     Indication: Anaesthesia
     Dosage: UNK
  2. PROPOFOL [Suspect]
     Active Substance: PROPOFOL
     Dosage: UNK (DOSE NOT SPECIFIED; INTRAVENOUS ROUTE; WAS THROUGHOUT THE PROCEDURE FREQUENCY UNKNOWN)
     Route: 042
     Dates: start: 2022

REACTIONS (10)
  - Blister [Recovered/Resolved]
  - Skin exfoliation [Recovered/Resolved]
  - Hypoaesthesia [Recovered/Resolved]
  - Pruritus [Unknown]
  - Rash papular [Unknown]
  - Drug hypersensitivity [Unknown]
  - Skin discolouration [Unknown]
  - Blood blister [Unknown]
  - Pain [Unknown]
  - Scratch [Unknown]

NARRATIVE: CASE EVENT DATE: 20220101
